FAERS Safety Report 10346948 (Version 3)
Quarter: 2014Q3

REPORT INFORMATION
  Report Type: Report from Study
  Country: DE (occurrence: DE)
  Receive Date: 20140729
  Receipt Date: 20140807
  Transmission Date: 20150326
  Serious: Yes (Other)
  Sender: FDA-Public Use
  Company Number: DE-CELGENEUS-062-POMAL-14024168

PATIENT

DRUGS (2)
  1. CC-4047 [Suspect]
     Active Substance: POMALIDOMIDE
     Indication: OFF LABEL USE
  2. CC-4047 [Suspect]
     Active Substance: POMALIDOMIDE
     Indication: PLASMA CELL MYELOMA
     Route: 048

REACTIONS (7)
  - Thrombosis [Unknown]
  - Neutropenia [Unknown]
  - Bone marrow toxicity [Unknown]
  - Thrombocytopenia [Unknown]
  - Neuropathy peripheral [Unknown]
  - Off label use [Unknown]
  - Leukopenia [Unknown]
